FAERS Safety Report 5905125-7 (Version None)
Quarter: 2008Q4

REPORT INFORMATION
  Report Type: 
  Country: None (occurrence: None)
  Receive Date: 20081001
  Receipt Date: 20080925
  Transmission Date: 20090506
  Serious: Yes (Death, Hospitalization)
  Sender: FDA-Public Use
  Company Number: JP-AVENTIS-200812630JP

PATIENT
  Age: 69 Year
  Sex: Male
  Weight: 39.9 kg

DRUGS (8)
  1. TAXOTERE [Suspect]
     Indication: OROPHARYNGEAL CANCER RECURRENT
     Route: 041
     Dates: start: 20080616, end: 20080616
  2. TAXOTERE [Suspect]
     Route: 041
     Dates: start: 20080730, end: 20080730
  3. FLUOROURACIL [Suspect]
     Indication: OROPHARYNGEAL CANCER RECURRENT
     Route: 041
     Dates: start: 20080616, end: 20080620
  4. FLUOROURACIL [Suspect]
     Route: 041
     Dates: start: 20080730, end: 20080803
  5. BRIPLATIN [Suspect]
     Indication: OROPHARYNGEAL CANCER RECURRENT
     Route: 041
     Dates: start: 20080616, end: 20080616
  6. BRIPLATIN [Suspect]
     Route: 041
     Dates: start: 20080730, end: 20080730
  7. DECADRON [Concomitant]
     Indication: PREMEDICATION
     Dates: start: 20080616, end: 20080616
  8. DECADRON [Concomitant]
     Dates: start: 20080730, end: 20080730

REACTIONS (7)
  - ANOREXIA [None]
  - DIARRHOEA [None]
  - GASTROINTESTINAL HAEMORRHAGE [None]
  - LIP HAEMORRHAGE [None]
  - PYREXIA [None]
  - SEPSIS [None]
  - VOMITING [None]
